FAERS Safety Report 19815931 (Version 7)
Quarter: 2022Q1

REPORT INFORMATION
  Report Type: Report from Study
  Country: CA (occurrence: CA)
  Receive Date: 20210910
  Receipt Date: 20220204
  Transmission Date: 20220424
  Serious: Yes (Other)
  Sender: FDA-Public Use
  Company Number: CA-AMGEN-CANSL2021105904

PATIENT
  Age: 67 Year
  Sex: Male
  Weight: 88 kg

DRUGS (12)
  1. MVASI [Suspect]
     Active Substance: BEVACIZUMAB-AWWB
     Indication: Glioblastoma
     Dosage: 800 MILLIGRAM, Q2WK
     Route: 042
  2. MVASI [Suspect]
     Active Substance: BEVACIZUMAB-AWWB
     Dosage: 800 MILLIGRAM, Q2WK
     Route: 042
     Dates: start: 20210708
  3. MVASI [Suspect]
     Active Substance: BEVACIZUMAB-AWWB
     Dosage: 800 MILLIGRAM, Q2WK
     Route: 042
     Dates: start: 20210721
  4. MVASI [Suspect]
     Active Substance: BEVACIZUMAB-AWWB
     Dosage: 800 MILLIGRAM, Q2WK
     Route: 042
     Dates: start: 20210804
  5. MVASI [Suspect]
     Active Substance: BEVACIZUMAB-AWWB
     Dosage: 800 MILLIGRAM, Q2WK
     Route: 042
     Dates: start: 20210818
  6. MVASI [Suspect]
     Active Substance: BEVACIZUMAB-AWWB
     Dosage: 800 MILLIGRAM, Q2WK
     Route: 042
     Dates: start: 20210901
  7. MVASI [Suspect]
     Active Substance: BEVACIZUMAB-AWWB
     Dosage: 800 MILLIGRAM, Q2WK
     Route: 042
     Dates: start: 20210921
  8. MVASI [Suspect]
     Active Substance: BEVACIZUMAB-AWWB
     Dosage: 800 MILLIGRAM, Q3WK
     Route: 042
     Dates: start: 20211013
  9. MVASI [Suspect]
     Active Substance: BEVACIZUMAB-AWWB
     Dosage: 850 MILLIGRAM, Q3WK
     Route: 042
     Dates: start: 20211103
  10. MVASI [Suspect]
     Active Substance: BEVACIZUMAB-AWWB
     Dosage: 850 MILLIGRAM, Q3WK
     Route: 042
     Dates: start: 20211124
  11. MVASI [Suspect]
     Active Substance: BEVACIZUMAB-AWWB
     Dosage: 850 MILLIGRAM, Q3WK
     Route: 042
     Dates: start: 20211216
  12. MVASI [Suspect]
     Active Substance: BEVACIZUMAB-AWWB
     Dosage: 850 MILLIGRAM, Q3WK
     Route: 042
     Dates: start: 20211216

REACTIONS (19)
  - Immunodeficiency [Unknown]
  - Headache [Not Recovered/Not Resolved]
  - Blood pressure increased [Unknown]
  - Fear [Unknown]
  - Aphasia [Unknown]
  - Malaise [Not Recovered/Not Resolved]
  - Sleep disorder [Recovered/Resolved]
  - Depression [Not Recovered/Not Resolved]
  - Dysphagia [Unknown]
  - Oesophagitis [Unknown]
  - Dry mouth [Unknown]
  - Off label use [Unknown]
  - Anxiety [Not Recovered/Not Resolved]
  - Somnolence [Recovered/Resolved]
  - Dyspnoea [Recovered/Resolved]
  - Pain [Recovering/Resolving]
  - Fatigue [Recovered/Resolved]
  - Decreased appetite [Recovered/Resolved]
  - Nausea [Recovered/Resolved]

NARRATIVE: CASE EVENT DATE: 20211001
